FAERS Safety Report 24352261 (Version 1)
Quarter: 2024Q3

REPORT INFORMATION
  Report Type: Spontaneous
  Country: NL (occurrence: NL)
  Receive Date: 20240923
  Receipt Date: 20240923
  Transmission Date: 20241017
  Serious: Yes (Life-Threatening, Hospitalization)
  Sender: BAUSCH AND LOMB
  Company Number: NL-MLMSERVICE-20240910-PI188744-00217-1

PATIENT
  Age: 57 Year
  Sex: Female

DRUGS (2)
  1. METFORMIN [Suspect]
     Active Substance: METFORMIN HYDROCHLORIDE
     Indication: Type 2 diabetes mellitus
     Route: 065
  2. GLICLAZIDE [Concomitant]
     Active Substance: GLICLAZIDE
     Indication: Type 2 diabetes mellitus
     Route: 065

REACTIONS (5)
  - Toxicity to various agents [Recovering/Resolving]
  - Dehydration [Recovered/Resolved]
  - Acute kidney injury [Recovered/Resolved]
  - Hypoglycaemia [Unknown]
  - Lactic acidosis [Recovered/Resolved]
